FAERS Safety Report 9025377 (Version 1)
Quarter: 2013Q1

REPORT INFORMATION
  Report Type: Spontaneous
  Country: FR (occurrence: FR)
  Receive Date: 20130122
  Receipt Date: 20130122
  Transmission Date: 20140127
  Serious: Yes (Hospitalization)
  Sender: FDA-Public Use
  Company Number: FR-PFIZER INC-2013011930

PATIENT
  Age: 71 Year
  Sex: Female

DRUGS (7)
  1. CELEBREX [Suspect]
     Indication: OSTEOARTHRITIS
     Dosage: UNK
     Route: 048
     Dates: start: 201209, end: 20121029
  2. VOLTARENE [Interacting]
     Indication: OSTEOARTHRITIS
     Dosage: UNK
     Route: 048
     Dates: start: 201209, end: 20121029
  3. BI-PROFENID [Interacting]
     Indication: OSTEOARTHRITIS
     Dosage: UNK
     Route: 048
     Dates: start: 201209, end: 20121029
  4. LODINE [Interacting]
     Indication: OSTEOARTHRITIS
     Dosage: UNK
     Route: 048
     Dates: start: 201209, end: 20121029
  5. NISISCO [Interacting]
     Indication: HYPERTENSION
     Dosage: 1 DF/DAY
     Route: 048
     Dates: end: 20121029
  6. FEGENOR [Concomitant]
     Indication: HYPERCHOLESTEROLAEMIA
     Dosage: 1 DF/DAY
     Route: 048
     Dates: end: 20121029
  7. TETRAZEPAM [Concomitant]
     Dosage: 1 DF/DAY
     Route: 048
     Dates: end: 20121029

REACTIONS (4)
  - Drug interaction [Recovered/Resolved]
  - Renal failure acute [Recovered/Resolved]
  - Asthenia [Recovered/Resolved]
  - Weight decreased [Recovered/Resolved]
